FAERS Safety Report 23306354 (Version 1)
Quarter: 2023Q4

REPORT INFORMATION
  Report Type: Spontaneous
  Country: CR (occurrence: CR)
  Receive Date: 20231218
  Receipt Date: 20231218
  Transmission Date: 20240109
  Serious: Yes (Hospitalization)
  Sender: FDA-Public Use
  Company Number: CR-NOVOPROD-1149285

PATIENT
  Sex: Female
  Weight: 3.41 kg

DRUGS (4)
  1. TRESIBA [Suspect]
     Active Substance: INSULIN DEGLUDEC
     Indication: Type 1 diabetes mellitus
     Dosage: 22 (UNSPECIFIED UNIT), QD
     Route: 064
     Dates: start: 202211, end: 20230124
  2. NOVORAPID [Suspect]
     Active Substance: INSULIN ASPART
     Indication: Type 1 diabetes mellitus
     Dosage: 2.5 IU PER CARB AT BREAKFAST, 3 IU PER CAB AT LUNCH AND DINNER
     Route: 064
     Dates: start: 202211, end: 20230822
  3. FOLIC ACID [Concomitant]
     Active Substance: FOLIC ACID
     Indication: Product used for unknown indication
     Dosage: 5 MG, QD
     Route: 064
     Dates: start: 2022, end: 20230822
  4. FEMIVITAL [Concomitant]
     Indication: Product used for unknown indication
     Dosage: 1 TABLET
     Route: 064
     Dates: start: 2022, end: 20230822

REACTIONS (2)
  - Foetal distress syndrome [Recovered/Resolved]
  - Foetal exposure during pregnancy [Recovered/Resolved]
